FAERS Safety Report 4508375-X (Version None)
Quarter: 2004Q4

REPORT INFORMATION
  Report Type: 
  Country: None (occurrence: None)
  Receive Date: 20041123
  Receipt Date: 20040120
  Transmission Date: 20050328
  Serious: No
  Sender: FDA-Public Use
  Company Number: US-GLAXOSMITHKLINE-A0494280A

PATIENT
  Age: 59 Year
  Sex: Female

DRUGS (10)
  1. WELLBUTRIN SR [Suspect]
     Indication: DEPRESSION
     Dosage: 150TAB TWICE PER DAY
     Route: 048
     Dates: start: 20030101
  2. VITAMIN D [Concomitant]
  3. RISPERDAL [Concomitant]
  4. AVANDIA [Concomitant]
  5. AXID [Concomitant]
  6. NEXIUM [Concomitant]
  7. ASPIRIN [Concomitant]
  8. CALCITRIOL [Concomitant]
  9. PROVIGIL [Concomitant]
  10. EFFEXOR [Concomitant]

REACTIONS (1)
  - VITAMIN D DEFICIENCY [None]
